FAERS Safety Report 12073033 (Version 1)
Quarter: 2016Q1

REPORT INFORMATION
  Report Type: Spontaneous
  Country: US (occurrence: US)
  Receive Date: 20160212
  Receipt Date: 20160212
  Transmission Date: 20160526
  Serious: No
  Sender: FDA-Public Use
  Company Number: US-TEVA-633025USA

PATIENT
  Sex: Female

DRUGS (15)
  1. LORTAB [Concomitant]
     Active Substance: ACETAMINOPHEN\HYDROCODONE BITARTRATE
  2. VITAMIN B12 [Concomitant]
     Active Substance: CYANOCOBALAMIN
  3. ALBUTEROL. [Concomitant]
     Active Substance: ALBUTEROL
  4. FOLIC ACID. [Concomitant]
     Active Substance: FOLIC ACID
  5. ANORO ELLIPTA [Concomitant]
     Active Substance: UMECLIDINIUM BROMIDE\VILANTEROL TRIFENATATE
  6. LOTRONEX [Concomitant]
     Active Substance: ALOSETRON HYDROCHLORIDE
  7. COPAXONE [Suspect]
     Active Substance: GLATIRAMER ACETATE
     Dosage: 20 MILLIGRAM DAILY;
     Dates: start: 2005, end: 2014
  8. LISINOPRIL. [Concomitant]
     Active Substance: LISINOPRIL
  9. SYNTHROID [Concomitant]
     Active Substance: LEVOTHYROXINE SODIUM
  10. COMBIVENT [Concomitant]
     Active Substance: ALBUTEROL SULFATE\IPRATROPIUM BROMIDE
  11. PRAMASONE [Concomitant]
  12. COPAXONE [Suspect]
     Active Substance: GLATIRAMER ACETATE
     Dates: start: 2014
  13. XARELTO [Concomitant]
     Active Substance: RIVAROXABAN
  14. METOPROLOL. [Concomitant]
     Active Substance: METOPROLOL
  15. BENADRYL [Concomitant]
     Active Substance: DIPHENHYDRAMINE HYDROCHLORIDE

REACTIONS (4)
  - Flushing [Unknown]
  - Injection site pain [Unknown]
  - Immediate post-injection reaction [Unknown]
  - Palpitations [Unknown]
